FAERS Safety Report 6387437-9 (Version None)
Quarter: 2009Q3

REPORT INFORMATION
  Report Type: 
  Country: None (occurrence: None)
  Receive Date: 20090930
  Receipt Date: 20090923
  Transmission Date: 20100115
  Serious: Yes (Congenital Anomaly)
  Sender: FDA-Public Use
  Company Number: 310007J09USA

PATIENT

DRUGS (2)
  1. GONAL-F [Suspect]
     Indication: INFERTILITY
     Dosage: TRANSPLACENTAL
     Route: 064
     Dates: end: 20090505
  2. HUMAN CHORIONIC GONADOTROPHIN (CHORIONIC GONADOTROPHIN) [Suspect]
     Indication: INFERTILITY
     Dosage: TRANSPLACENTAL
     Route: 064
     Dates: end: 20090505

REACTIONS (4)
  - ABORTION SPONTANEOUS [None]
  - CHROMOSOMAL DELETION [None]
  - CONGENITAL ANOMALY [None]
  - MATERNAL DRUGS AFFECTING FOETUS [None]
